FAERS Safety Report 15619563 (Version 1)
Quarter: 2018Q4

REPORT INFORMATION
  Report Type: Report from Study
  Country: AT (occurrence: AT)
  Receive Date: 20181115
  Receipt Date: 20181115
  Transmission Date: 20190205
  Serious: Yes (Other)
  Sender: FDA-Public Use
  Company Number: AT-ACCORD-092319

PATIENT
  Age: 76 Year
  Sex: Female

DRUGS (12)
  1. BERODUAL [Concomitant]
     Active Substance: FENOTEROL HYDROBROMIDE\IPRATROPIUM BROMIDE
  2. XARELTO [Concomitant]
     Active Substance: RIVAROXABAN
  3. LISINOPRIL. [Concomitant]
     Active Substance: LISINOPRIL
  4. PANTOPRAZOLE [Concomitant]
     Active Substance: PANTOPRAZOLE
  5. FUROSEMIDE/SPIRONOLACTONE [Concomitant]
  6. DIGIMERCK [Concomitant]
     Active Substance: DIGITOXIN
  7. TOCILIZUMAB. [Concomitant]
     Active Substance: TOCILIZUMAB
     Indication: RHEUMATOID ARTHRITIS
     Route: 058
     Dates: start: 201803, end: 201808
  8. CONCOR [Concomitant]
     Active Substance: BISOPROLOL FUMARATE
  9. METHOTREXATE. [Suspect]
     Active Substance: METHOTREXATE
     Indication: RHEUMATOID ARTHRITIS
     Route: 058
     Dates: start: 201706, end: 201808
  10. FOLIC ACID. [Concomitant]
     Active Substance: FOLIC ACID
  11. NOVALGIN (METAMIZOLE SODIUM) [Concomitant]
     Active Substance: METAMIZOLE SODIUM
  12. APREDNISLON [Concomitant]
     Active Substance: PREDNISOLONE

REACTIONS (1)
  - Bicytopenia [Not Recovered/Not Resolved]

NARRATIVE: CASE EVENT DATE: 20180823
